FAERS Safety Report 8297184-4 (Version None)
Quarter: 2012Q2

REPORT INFORMATION
  Report Type: 
  Country: None (occurrence: None)
  Receive Date: 20120419
  Receipt Date: 20120419
  Transmission Date: 20120825
  Serious: Yes (Other)
  Sender: FDA-Public Use
  Company Number: US-PFIZER INC-2012080956

PATIENT
  Sex: Female
  Weight: 63.492 kg

DRUGS (4)
  1. CELEBREX [Suspect]
     Indication: ARTHRITIS
     Dosage: 200 MG, 1X/DAY
     Route: 048
     Dates: end: 20120101
  2. PLAVIX [Concomitant]
     Indication: PERIPHERAL VASCULAR DISORDER
     Dosage: UNK
  3. PLAVIX [Concomitant]
     Indication: CARDIOVASCULAR DISORDER
  4. MELOXICAM [Suspect]
     Indication: ARTHRITIS
     Dosage: 15 MG, 1X/DAY
     Route: 048
     Dates: start: 20120101, end: 20120317

REACTIONS (4)
  - BLOOD DISORDER [None]
  - ARTHRITIS [None]
  - MUSCLE SPASMS [None]
  - HEADACHE [None]
